FAERS Safety Report 4399828-6 (Version None)
Quarter: 2004Q3

REPORT INFORMATION
  Report Type: 
  Country: None (occurrence: None)
  Receive Date: 20040714
  Receipt Date: 20040623
  Transmission Date: 20050211
  Serious: Yes (Other)
  Sender: FDA-Public Use
  Company Number: JP_040603576

PATIENT
  Age: 70 Year
  Sex: Female

DRUGS (1)
  1. VANCOMYCIN [Suspect]
     Indication: STAPHYLOCOCCAL INFECTION

REACTIONS (8)
  - DIABETIC NEPHROPATHY [None]
  - DISSEMINATED INTRAVASCULAR COAGULATION [None]
  - DRUG INEFFECTIVE [None]
  - HAEMODIALYSIS [None]
  - MASTOID DISORDER [None]
  - PAIN [None]
  - PYREXIA [None]
  - RENAL IMPAIRMENT [None]
